FAERS Safety Report 7891548-6 (Version None)
Quarter: 2011Q4

REPORT INFORMATION
  Report Type: 
  Country: None (occurrence: None)
  Receive Date: 20111103
  Receipt Date: 20110804
  Transmission Date: 20120403
  Serious: No
  Sender: FDA-Public Use
  Company Number: US-AMGEN-USASP2011039665

PATIENT
  Age: 45 Year
  Sex: Female

DRUGS (2)
  1. ENBREL [Suspect]
     Indication: RHEUMATOID ARTHRITIS
     Dosage: 50 MG, QWK
     Dates: start: 20110619
  2. TREXALL [Concomitant]
     Dosage: UNK

REACTIONS (6)
  - COUGH [None]
  - PARANASAL SINUS HYPERSECRETION [None]
  - THROAT IRRITATION [None]
  - OROPHARYNGEAL PAIN [None]
  - FATIGUE [None]
  - MALAISE [None]
